FAERS Safety Report 11279810 (Version 1)
Quarter: 2015Q3

REPORT INFORMATION
  Report Type: Spontaneous
  Country: US (occurrence: US)
  Receive Date: 20150717
  Receipt Date: 20150717
  Transmission Date: 20151125
  Serious: No
  Sender: FDA-Public Use
  Company Number: US-PFIZER INC-2015230354

PATIENT
  Age: 77 Year
  Sex: Male
  Weight: 87 kg

DRUGS (1)
  1. INLYTA [Suspect]
     Active Substance: AXITINIB
     Indication: RENAL CELL CARCINOMA STAGE IV
     Dosage: UNK

REACTIONS (7)
  - Pain [Unknown]
  - Hypoacusis [Unknown]
  - Chest discomfort [Unknown]
  - Renal cyst [Unknown]
  - Disease progression [Unknown]
  - Asthenia [Unknown]
  - Renal cell carcinoma stage IV [Unknown]
